FAERS Safety Report 8976601 (Version 1)
Quarter: 2012Q4

REPORT INFORMATION
  Report Type: 
  Country: US (occurrence: US)
  Receive Date: 20121219
  Receipt Date: 20121219
  Transmission Date: 20130627
  Serious: No
  Sender: FDA-Public Use
  Company Number: US-AMGEN-USASP2012061319

PATIENT
  Age: 70 Year
  Sex: Female

DRUGS (10)
  1. PROLIA [Suspect]
     Indication: OSTEOPOROSIS POSTMENOPAUSAL
     Dosage: UNK
     Dates: start: 20120925
  2. NITROGLYCERIN [Concomitant]
     Dosage: UNK
     Route: 060
  3. CARVEDILOL [Concomitant]
     Dosage: UNK
  4. CRESTOR [Concomitant]
     Dosage: UNK
  5. AMLODIPINE [Concomitant]
     Dosage: UNK
  6. HYDROCHLOROTHIAZIDE [Concomitant]
     Dosage: UNK
  7. CALCIUM + VITAMIN D [Concomitant]
     Dosage: UNK
  8. FISH OIL [Concomitant]
     Dosage: UNK
  9. CENTRUM SILVER [Concomitant]
     Dosage: UNK
  10. ASPIRIN [Concomitant]
     Dosage: 325 UNK, UNK

REACTIONS (1)
  - Angina pectoris [Unknown]
